FAERS Safety Report 9422135 (Version 2)
Quarter: 2013Q3

REPORT INFORMATION
  Report Type: Spontaneous
  Country: CA (occurrence: CA)
  Receive Date: 20130726
  Receipt Date: 20130830
  Transmission Date: 20140515
  Serious: Yes (Other)
  Sender: FDA-Public Use
  Company Number: CA-ABBOTT-13X-028-1123677-00

PATIENT
  Sex: Female

DRUGS (2)
  1. BIAXIN [Suspect]
     Indication: SINUSITIS
  2. DRISTAN COLD [Suspect]
     Indication: PRODUCT USED FOR UNKNOWN INDICATION
     Dosage: 2 TABLETS AT NIGHT
     Dates: start: 20120729, end: 20120730

REACTIONS (4)
  - Circumstance or information capable of leading to medication error [Unknown]
  - Medication error [Recovered/Resolved]
  - Malaise [Recovered/Resolved]
  - Circulatory collapse [Recovered/Resolved]
